FAERS Safety Report 25564420 (Version 1)
Quarter: 2025Q3

REPORT INFORMATION
  Report Type: Report from Study
  Country: US (occurrence: US)
  Receive Date: 20250716
  Receipt Date: 20250716
  Transmission Date: 20251021
  Serious: Yes (Hospitalization)
  Sender: TAKEDA
  Company Number: US-TAKEDA-2025TUS010521

PATIENT
  Sex: Female

DRUGS (11)
  1. PONATINIB [Suspect]
     Active Substance: PONATINIB
     Indication: Acute myeloid leukaemia
     Dosage: 30 MILLIGRAM, QD
  2. PONATINIB [Suspect]
     Active Substance: PONATINIB
     Dosage: 15 MILLIGRAM, QD
  3. METHOTREXATE [Suspect]
     Active Substance: METHOTREXATE
     Indication: Product used for unknown indication
  4. POTASSIUM CHLORIDE [Concomitant]
     Active Substance: POTASSIUM CHLORIDE
  5. LIPITOR [Concomitant]
     Active Substance: ATORVASTATIN CALCIUM
  6. DIFLUCAN [Concomitant]
     Active Substance: FLUCONAZOLE
  7. ACYCLOVIR [Concomitant]
     Active Substance: ACYCLOVIR
  8. LEVAQUIN [Concomitant]
     Active Substance: LEVOFLOXACIN
  9. BENZONATATE [Concomitant]
     Active Substance: BENZONATATE
  10. ALBUTEROL [Concomitant]
     Active Substance: ALBUTEROL
  11. BLINCYTO [Concomitant]
     Active Substance: BLINATUMOMAB

REACTIONS (3)
  - Toxicity to various agents [Unknown]
  - Burning sensation [Unknown]
  - Rash [Unknown]
